FAERS Safety Report 7106324-1 (Version None)
Quarter: 2010Q4

REPORT INFORMATION
  Report Type: 
  Country: None (occurrence: None)
  Receive Date: 20101116
  Receipt Date: 20101105
  Transmission Date: 20110411
  Serious: Yes (Other)
  Sender: FDA-Public Use
  Company Number: US-JNJFOC-20101103643

PATIENT
  Sex: Female
  Weight: 71.67 kg

DRUGS (6)
  1. TOPAMAX [Suspect]
     Indication: FIBROMYALGIA
     Route: 048
  2. NEURONTIN [Suspect]
     Indication: FIBROMYALGIA
     Route: 065
  3. GABAPENTIN [Suspect]
     Indication: FIBROMYALGIA
     Route: 065
  4. BERLIPRIL [Concomitant]
     Indication: HYPERTENSION
     Route: 065
  5. BERLIPRIL [Concomitant]
     Indication: MIGRAINE
     Route: 065
  6. PRILOSEC [Concomitant]
     Indication: GASTROOESOPHAGEAL REFLUX DISEASE
     Route: 065

REACTIONS (2)
  - EMOTIONAL DISORDER [None]
  - SUICIDAL IDEATION [None]
